FAERS Safety Report 4399883-3 (Version None)
Quarter: 2004Q3

REPORT INFORMATION
  Report Type: 
  Country: None (occurrence: None)
  Receive Date: 20040712
  Receipt Date: 20030519
  Transmission Date: 20050211
  Serious: Yes (Death)
  Sender: FDA-Public Use
  Company Number: 3486

PATIENT
  Age: 83 Year
  Sex: Male
  Weight: 47 kg

DRUGS (7)
  1. PACERONE [Suspect]
     Indication: ARRHYTHMIA
     Dosage: 200 MG QD PO
     Route: 048
     Dates: start: 20020504, end: 20020627
  2. AMIODARONE HCL [Suspect]
     Indication: ARRHYTHMIA
     Dosage: 200 MG QD PO
     Route: 048
     Dates: end: 20020503
  3. DIGOXIN [Concomitant]
  4. FUROSEMIDE [Concomitant]
  5. CAPTOPRIL [Concomitant]
  6. K-DUR 10 [Concomitant]
  7. LEVOTHYROXINE SODIUM [Concomitant]

REACTIONS (1)
  - PULMONARY FIBROSIS [None]
